FAERS Safety Report 14913167 (Version 1)
Quarter: 2018Q2

REPORT INFORMATION
  Report Type: Spontaneous
  Country: IN (occurrence: IN)
  Receive Date: 20180518
  Receipt Date: 20180518
  Transmission Date: 20180711
  Serious: Yes (Other)
  Sender: FDA-Public Use
  Company Number: IN-SCIEGEN PHARMACEUTICALS INC-2018SCILIT00302

PATIENT
  Age: 58 Year
  Sex: Male

DRUGS (4)
  1. ACETAZOLAMIDE. [Suspect]
     Active Substance: ACETAZOLAMIDE
     Indication: INTRAOCULAR PRESSURE INCREASED
     Dosage: 250 MG, UNK, THIRTY MINUTES PRIOR TO THE SURGERY
  2. ACETAZOLAMIDE. [Suspect]
     Active Substance: ACETAZOLAMIDE
     Dosage: 250 MG, UNK, A DAY AFTER THE SURGERY
  3. HYDROCHLOROTHIAZIDE TABLETS [Suspect]
     Active Substance: HYDROCHLOROTHIAZIDE
     Indication: HYPERTENSION
     Dosage: UNK
     Route: 048
  4. BRIMONIDINE/TIMOLOL [Concomitant]
     Active Substance: BRIMONIDINE TARTRATE\TIMOLOL MALEATE
     Indication: INTRAOCULAR PRESSURE INCREASED
     Dosage: UNK
     Route: 065

REACTIONS (3)
  - Idiosyncratic drug reaction [Recovered/Resolved]
  - Choroidal detachment [Recovered/Resolved]
  - Angle closure glaucoma [Recovered/Resolved]
